FAERS Safety Report 5119473-4 (Version None)
Quarter: 2006Q3

REPORT INFORMATION
  Report Type: 
  Country: None (occurrence: None)
  Receive Date: 20060929
  Receipt Date: 20060919
  Transmission Date: 20061208
  Serious: Yes (Other)
  Sender: FDA-Public Use
  Company Number: 2006094832

PATIENT
  Age: 62 Year
  Sex: Male

DRUGS (63)
  1. PROCARDIA XL [Suspect]
  2. MOTRIN [Suspect]
  3. LIPITOR [Concomitant]
  4. TOPROL-XL [Concomitant]
  5. PLAVIX [Concomitant]
  6. ASPIRIN [Concomitant]
  7. PROPOXYPHENE HCL AND ACETAMINOPHEN (DEXTROPROPOXYPHENE HYDROCHLORIDE, [Concomitant]
  8. CLARINEX [Concomitant]
  9. ISOSORBIDE MONONITRATE [Concomitant]
  10. FUROSEMIDE [Concomitant]
  11. LANTUS [Concomitant]
  12. TERAZOSIN (TERAZOSIN) [Concomitant]
  13. ZETIA [Concomitant]
  14. HUMULIN N [Concomitant]
  15. FOLATE (FOLIC ACID) [Concomitant]
  16. VITAMIN B6 [Concomitant]
  17. VITAMIN B12 [Concomitant]
  18. HYTRIN [Concomitant]
  19. GLUCOTROL XL [Concomitant]
  20. GLUCOTROL [Concomitant]
  21. CARDIZEM CD [Concomitant]
  22. NIZORAL [Concomitant]
  23. AMOXIL [Concomitant]
  24. DISALCID (SALSALATE) [Concomitant]
  25. DARVOCET [Concomitant]
  26. PRAVACHOL [Concomitant]
  27. PREVACID [Concomitant]
  28. ULTRAM [Concomitant]
  29. GLUCOPHAGE [Concomitant]
  30. ZITHROMAX [Concomitant]
  31. CEFTIN [Concomitant]
  32. MAXAIR [Concomitant]
  33. HUMULIN REGULAR (INSULIN HUMAN) [Concomitant]
  34. REDUX [Concomitant]
  35. MAGNESIUM (MAGNESIUM) [Concomitant]
  36. PRILOSEC [Concomitant]
  37. PROPULSID [Concomitant]
  38. AUGMENTIN '125' [Concomitant]
  39. ACCUPRIL [Concomitant]
  40. PSYLLIUM (PSYLLIUM) [Concomitant]
  41. VIAGRA [Concomitant]
  42. CLARITIN [Concomitant]
  43. ATARAX (HYDROXYZINE HYDROHCLORIDE) [Concomitant]
  44. KWELL (LINDANE) [Concomitant]
  45. HYOSCYAMINE (HYOSCYAMINE) [Concomitant]
  46. AXID [Concomitant]
  47. CANTIL (MEPENZOLATE BROMIDE) [Concomitant]
  48. LOTRISONE [Concomitant]
  49. CARTIA XT [Concomitant]
  50. TEQUIN [Concomitant]
  51. NITROQUICK (GLYCERYL TRINITRATE) [Concomitant]
  52. ANUSOL [Concomitant]
  53. NITROLINGUAL (GLYCERYL TRINITRATE) [Concomitant]
  54. DURATUSS (GUAIFENESIN, PSEUDOEPHEDRINE HYDROCHLORIDE) [Concomitant]
  55. NEURONTIN [Concomitant]
  56. LOVASTATIN [Concomitant]
  57. LASIX [Concomitant]
  58. ANDROGEL [Concomitant]
  59. VYTORIN [Concomitant]
  60. LOPRESSOR [Concomitant]
  61. PRAMOXINE (PRAMOXINE) [Concomitant]
  62. NEXIUM [Concomitant]
  63. ELIDEL [Concomitant]

REACTIONS (3)
  - DRUG HYPERSENSITIVITY [None]
  - PHARYNGEAL OEDEMA [None]
  - TONGUE OEDEMA [None]
